FAERS Safety Report 20334916 (Version 1)
Quarter: 2022Q1

REPORT INFORMATION
  Report Type: Spontaneous
  Country: MY (occurrence: MY)
  Receive Date: 20220114
  Receipt Date: 20220114
  Transmission Date: 20220423
  Serious: Yes (Death, Other)
  Sender: FDA-Public Use
  Company Number: MY-NOVARTISPH-NVSC2022MY007106

PATIENT

DRUGS (1)
  1. RIBOCICLIB [Suspect]
     Active Substance: RIBOCICLIB
     Indication: Product used for unknown indication
     Dosage: UNK
     Route: 065

REACTIONS (4)
  - Abdominal neoplasm [Fatal]
  - Ovarian cancer [Fatal]
  - General physical health deterioration [Fatal]
  - Post procedural complication [Fatal]
